FAERS Safety Report 4699686-6 (Version None)
Quarter: 2005Q2

REPORT INFORMATION
  Report Type: 
  Country: None (occurrence: None)
  Receive Date: 20050623
  Receipt Date: 20050616
  Transmission Date: 20051028
  Serious: Yes (Life-Threatening, Hospitalization)
  Sender: FDA-Public Use
  Company Number: MEDI-0003494

PATIENT
  Sex: Male

DRUGS (2)
  1. ETHYOL [Suspect]
  2. BETADINE [Suspect]

REACTIONS (2)
  - MALAISE [None]
  - PYREXIA [None]
